FAERS Safety Report 5623384-5 (Version None)
Quarter: 2008Q1

REPORT INFORMATION
  Report Type: 
  Country: None (occurrence: None)
  Receive Date: 20080212
  Receipt Date: 20080131
  Transmission Date: 20080703
  Serious: Yes (Hospitalization)
  Sender: FDA-Public Use
  Company Number: DE-PFIZER INC-2008011198

PATIENT
  Sex: Female

DRUGS (1)
  1. GLADEM [Suspect]
     Dosage: DAILY DOSE:6000MG
     Route: 048

REACTIONS (8)
  - DRUG ABUSE [None]
  - DRY MOUTH [None]
  - MUSCLE SPASMS [None]
  - OVERDOSE [None]
  - PUPIL FIXED [None]
  - SUICIDE ATTEMPT [None]
  - TACHYCARDIA [None]
  - VOMITING [None]
